FAERS Safety Report 14853907 (Version 2)
Quarter: 2018Q2

REPORT INFORMATION
  Report Type: Spontaneous
  Country: GB (occurrence: GB)
  Receive Date: 20180507
  Receipt Date: 20180613
  Transmission Date: 20180711
  Serious: Yes (Other)
  Sender: FDA-Public Use
  Company Number: GB-UCBSA-2018018584

PATIENT
  Age: 34 Year
  Sex: Female

DRUGS (3)
  1. BRIVIACT [Suspect]
     Active Substance: BRIVARACETAM
     Indication: EPILEPSY
     Dosage: 50 MG, 2X/DAY (BID)
     Route: 048
  2. BRIVIACT [Suspect]
     Active Substance: BRIVARACETAM
     Dosage: 75 MG, 2X/DAY (BID)
     Route: 048
  3. LAMOTRIGINE. [Concomitant]
     Active Substance: LAMOTRIGINE
     Dosage: 150 MG, 3X/DAY (TID)
     Route: 048

REACTIONS (2)
  - Drug ineffective [Unknown]
  - Seizure [Unknown]
